FAERS Safety Report 6886817-2 (Version None)
Quarter: 2010Q3

REPORT INFORMATION
  Report Type: 
  Country: None (occurrence: None)
  Receive Date: 20100730
  Receipt Date: 20100721
  Transmission Date: 20110219
  Serious: Yes (Other)
  Sender: FDA-Public Use
  Company Number: US-PFIZER INC-2010091707

PATIENT
  Sex: Female

DRUGS (2)
  1. GEODON [Suspect]
     Dosage: 60 MG, 1X/DAY
     Route: 048
  2. GEODON [Suspect]
     Dosage: 60 MG IN THE MORNING AND 120 MG IN THE NIGHT

REACTIONS (2)
  - CARDIAC MURMUR [None]
  - CHEST PAIN [None]
